FAERS Safety Report 6828363-8 (Version None)
Quarter: 2010Q3

REPORT INFORMATION
  Report Type: 
  Country: None (occurrence: None)
  Receive Date: 20100709
  Receipt Date: 20070208
  Transmission Date: 20110219
  Serious: No
  Sender: FDA-Public Use
  Company Number: US-PFIZER INC-2007010985

PATIENT
  Sex: Female
  Weight: 63.5 kg

DRUGS (2)
  1. CHANTIX [Suspect]
     Indication: SMOKING CESSATION THERAPY
  2. ADVIL LIQUI-GELS [Concomitant]

REACTIONS (3)
  - NAUSEA [None]
  - PANIC ATTACK [None]
  - THERAPEUTIC RESPONSE DECREASED [None]
